FAERS Safety Report 8243727-6 (Version None)
Quarter: 2012Q1

REPORT INFORMATION
  Report Type: 
  Country: None (occurrence: None)
  Receive Date: 20120329
  Receipt Date: 20110428
  Transmission Date: 20120608
  Serious: No
  Sender: FDA-Public Use
  Company Number: US-MYLANLABS-2011S1008759

PATIENT
  Age: 72 Year
  Sex: Male

DRUGS (12)
  1. LOVASTATIN [Concomitant]
  2. CARTIA XT [Concomitant]
  3. EMSAM [Suspect]
     Indication: DEPRESSION
     Dosage: QD
     Route: 062
     Dates: start: 20110425
  4. SEROQUEL [Concomitant]
  5. DILTIAZEM HCL [Concomitant]
  6. LEVOTHYROXINE SODIUM [Concomitant]
  7. MULTI-VITAMIN [Concomitant]
  8. WARFARIN SODIUM [Concomitant]
  9. PRAMIPEXOLE DIHYDROCHLORIDE [Concomitant]
  10. SOTALOL HCL [Concomitant]
  11. LORAZEPAM [Concomitant]
  12. INSULIN [Concomitant]

REACTIONS (4)
  - DRUG INEFFECTIVE [None]
  - DEPRESSION [None]
  - DIZZINESS [None]
  - INSOMNIA [None]
